FAERS Safety Report 5674093-8 (Version None)
Quarter: 2008Q1

REPORT INFORMATION
  Report Type: 
  Country: None (occurrence: None)
  Receive Date: 20080320
  Receipt Date: 20080310
  Transmission Date: 20080703
  Serious: Yes (Other)
  Sender: FDA-Public Use
  Company Number: US-JNJFOC-20080303069

PATIENT
  Sex: Female
  Weight: 58.97 kg

DRUGS (7)
  1. DURAGESIC-100 [Suspect]
     Route: 062
  2. DURAGESIC-100 [Suspect]
     Indication: INTERVERTEBRAL DISC PROTRUSION
     Route: 062
  3. FENTANYL TRANSDERMAL SYSTEM [Suspect]
     Indication: INTERVERTEBRAL DISC PROTRUSION
     Route: 062
  4. CLIMARA [Concomitant]
     Indication: HORMONE REPLACEMENT THERAPY
     Route: 062
  5. PROCRIT [Concomitant]
     Indication: HEPATITIS C
     Route: 065
  6. RIBAVIRIN [Concomitant]
     Indication: HEPATITIS C
     Route: 065
  7. LORTAB [Concomitant]
     Indication: INTERVERTEBRAL DISC PROTRUSION
     Route: 048

REACTIONS (2)
  - CHOLECYSTECTOMY [None]
  - PHARMACEUTICAL PRODUCT COMPLAINT [None]
